FAERS Safety Report 10347761 (Version 1)
Quarter: 2014Q3

REPORT INFORMATION
  Report Type: Spontaneous
  Country: US (occurrence: None)
  Receive Date: 20140728
  Receipt Date: 20140728
  Transmission Date: 20150326
  Serious: Yes (Other)
  Sender: FDA-Public Use
  Company Number: None

PATIENT
  Age: 84 Year
  Sex: Male

DRUGS (1)
  1. EXJADE [Suspect]
     Active Substance: DEFERASIROX
     Indication: HEREDITARY HAEMOCHROMATOSIS
     Route: 048
     Dates: start: 20120606

REACTIONS (4)
  - Bladder cancer [None]
  - Renal cancer [None]
  - Cerebrovascular accident [None]
  - Brain neoplasm malignant [None]

NARRATIVE: CASE EVENT DATE: 20140719
